FAERS Safety Report 12883086 (Version 6)
Quarter: 2025Q2

REPORT INFORMATION
  Report Type: Report from Study
  Country: CA (occurrence: CA)
  Receive Date: 20161025
  Receipt Date: 20250514
  Transmission Date: 20250716
  Serious: Yes (Hospitalization)
  Sender: TAKEDA
  Company Number: CA-SHIRE-CA201615466

PATIENT
  Age: 31 Year
  Sex: Male

DRUGS (7)
  1. LANADELUMAB [Suspect]
     Active Substance: LANADELUMAB
     Indication: Hereditary angioedema with C1 esterase inhibitor deficiency
     Dosage: UNK UNK, Q2WEEKS
     Dates: start: 20230808
  2. LANADELUMAB [Suspect]
     Active Substance: LANADELUMAB
     Dosage: UNK UNK, Q4WEEKS
  3. LANADELUMAB [Suspect]
     Active Substance: LANADELUMAB
     Dosage: UNK UNK, Q5WEEKS
  4. FIRAZYR [Suspect]
     Active Substance: ICATIBANT ACETATE
     Indication: Hereditary angioedema
     Dates: start: 20161011, end: 20161011
  5. FIRAZYR [Suspect]
     Active Substance: ICATIBANT ACETATE
  6. MORPHINE [Suspect]
     Active Substance: MORPHINE
     Indication: Pain
  7. DANAZOL [Concomitant]
     Active Substance: DANAZOL
     Indication: Product used for unknown indication
     Dosage: 50 MILLIGRAM, QD
     Dates: start: 200001

REACTIONS (8)
  - Hereditary angioedema [Recovered/Resolved]
  - Product use in unapproved indication [Unknown]
  - Product prescribing error [Unknown]
  - Withdrawal syndrome [Unknown]
  - Hangover [Recovered/Resolved]
  - Inappropriate schedule of product administration [Unknown]
  - Product dose omission issue [Unknown]
  - Headache [Recovered/Resolved]

NARRATIVE: CASE EVENT DATE: 20161001
